FAERS Safety Report 6808586-4 (Version None)
Quarter: 2010Q2

REPORT INFORMATION
  Report Type: 
  Country: None (occurrence: None)
  Receive Date: 20100629
  Receipt Date: 20090827
  Transmission Date: 20101027
  Serious: No
  Sender: FDA-Public Use
  Company Number: US-PFIZER INC-2009234959

PATIENT
  Sex: Male
  Weight: 94.3 kg

DRUGS (6)
  1. VIAGRA [Suspect]
     Indication: ERECTILE DYSFUNCTION
     Dosage: 100 MG, UNK
     Route: 048
     Dates: start: 20090301, end: 20090801
  2. AVODART [Concomitant]
     Indication: PROSTATOMEGALY
     Dosage: 0.5 MG, 1X/DAY
     Route: 048
  3. AMLODIPINE [Concomitant]
     Dosage: UNK
  4. LOTREL [Concomitant]
     Dosage: 5MG/40MG ONCE DAILY
     Route: 048
  5. PRILOSEC [Concomitant]
     Dosage: 20 MG, 1X/DAY
     Route: 048
  6. CELEBREX [Concomitant]
     Route: 048

REACTIONS (2)
  - DRUG INEFFECTIVE [None]
  - FLUSHING [None]
